FAERS Safety Report 18686668 (Version 1)
Quarter: 2020Q4

REPORT INFORMATION
  Report Type: Spontaneous
  Country: US (occurrence: US)
  Receive Date: 20201230
  Receipt Date: 20201230
  Transmission Date: 20210114
  Serious: Yes (Life-Threatening, Hospitalization, Other)
  Sender: FDA-Public Use
  Company Number: US-BAXTER-2020BAX026859

PATIENT
  Age: 71 Year
  Sex: Male

DRUGS (11)
  1. DOXIL [Suspect]
     Active Substance: DOXORUBICIN HYDROCHLORIDE
     Indication: DIFFUSE LARGE B-CELL LYMPHOMA
     Dosage: INDUCTION CHEMOTHERAPY
     Route: 065
  2. CYCLOPHOSPHAMIDE FOR INJECTION, USP [Suspect]
     Active Substance: CYCLOPHOSPHAMIDE
     Indication: DIFFUSE LARGE B-CELL LYMPHOMA
  3. ETOPOSIDE PHOSPHATE [Suspect]
     Active Substance: ETOPOSIDE PHOSPHATE
     Indication: B-CELL LYMPHOMA
     Dosage: R-EPOCH (INDUCTION CHEMOTHERAPY)
     Route: 065
  4. DOXIL [Suspect]
     Active Substance: DOXORUBICIN HYDROCHLORIDE
     Indication: B-CELL LYMPHOMA
  5. ETOPOSIDE PHOSPHATE [Suspect]
     Active Substance: ETOPOSIDE PHOSPHATE
     Indication: B-CELL LYMPHOMA
  6. PREDNISONE. [Suspect]
     Active Substance: PREDNISONE
     Indication: DIFFUSE LARGE B-CELL LYMPHOMA
     Dosage: R-EPOCH (INDUCTION CHEMOTHERAPY)
     Route: 065
  7. CYCLOPHOSPHAMIDE FOR INJECTION, USP [Suspect]
     Active Substance: CYCLOPHOSPHAMIDE
     Indication: DIFFUSE LARGE B-CELL LYMPHOMA
     Dosage: R-EPOCH (INDUCTION CHEMOTHERAPY)
     Route: 065
  8. PREDNISONE. [Suspect]
     Active Substance: PREDNISONE
     Indication: DIFFUSE LARGE B-CELL LYMPHOMA
  9. ENOXAPARIN [Suspect]
     Active Substance: ENOXAPARIN
     Indication: BLOOD DISORDER PROPHYLAXIS
     Route: 065
  10. VINCRISTINE SULFATE. [Suspect]
     Active Substance: VINCRISTINE SULFATE
     Indication: DIFFUSE LARGE B-CELL LYMPHOMA
     Dosage: R-EPOCH (INDUCTION CHEMOTHERAPY)
     Route: 065
  11. VINCRISTINE SULFATE. [Suspect]
     Active Substance: VINCRISTINE SULFATE
     Indication: B-CELL LYMPHOMA

REACTIONS (3)
  - Melaena [Unknown]
  - Gastrointestinal haemorrhage [Recovered/Resolved]
  - Shock haemorrhagic [Recovered/Resolved]
